FAERS Safety Report 5999291-5 (Version None)
Quarter: 2008Q4

REPORT INFORMATION
  Report Type: 
  Country: None (occurrence: None)
  Receive Date: 20081215
  Receipt Date: 20081209
  Transmission Date: 20090506
  Serious: Yes (Life-Threatening)
  Sender: FDA-Public Use
  Company Number: CN-BRISTOL-MYERS SQUIBB COMPANY-14441125

PATIENT
  Age: 92 Year
  Sex: Male

DRUGS (1)
  1. MAXIPIME [Suspect]
     Indication: LUNG INFECTION
     Route: 048

REACTIONS (2)
  - ASPHYXIA [None]
  - MUSCLE SPASMS [None]
